FAERS Safety Report 15941799 (Version 1)
Quarter: 2019Q1

REPORT INFORMATION
  Report Type: Spontaneous
  Country: US (occurrence: US)
  Receive Date: 20190210
  Receipt Date: 20190210
  Transmission Date: 20190417
  Serious: Yes (Other)
  Sender: FDA-Public Use
  Company Number: None

PATIENT
  Age: 55 Year
  Sex: Female
  Weight: 128.7 kg

DRUGS (7)
  1. 7.5 MG OLANZAPINE ONCE PER DAY [Concomitant]
  2. 1 MG LORAZEPAM 2 X PER DAY AS NEEDED [Concomitant]
  3. VITAMIN B-COMPLEX [Concomitant]
     Active Substance: DEXPANTHENOL\NIACINAMIDE\PYRIDOXINE HYDROCHLORIDE\RIBOFLAVIN 5^-PHOSPHATE SODIUM\THIAMINE HYDROCHLORIDE
  4. IBUPROFEN. [Concomitant]
     Active Substance: IBUPROFEN
  5. OLANZAPINE TABLETS, USP [Suspect]
     Active Substance: OLANZAPINE
     Indication: SCHIZOPHRENIA
     Dosage: ?          QUANTITY:1 TABLET(S);?
     Route: 048
  6. IRON [Concomitant]
     Active Substance: IRON
  7. POTASSIUM [Concomitant]
     Active Substance: POTASSIUM

REACTIONS (2)
  - Hypersensitivity [None]
  - Pruritus [None]

NARRATIVE: CASE EVENT DATE: 20190210
